FAERS Safety Report 9282925 (Version 1)
Quarter: 2013Q2

REPORT INFORMATION
  Report Type: Spontaneous
  Country: GB (occurrence: None)
  Receive Date: 20130503
  Receipt Date: 20130503
  Transmission Date: 20140414
  Serious: Yes (Life-Threatening)
  Sender: FDA-Public Use
  Company Number: E2B_00000773

PATIENT
  Sex: Female
  Weight: 2.47 kg

DRUGS (2)
  1. QUETIAPINE [Suspect]
     Indication: PERSONALITY DISORDER
     Dosage: 1 DOSE IN 1 DAY.
     Route: 064
  2. SERTRALINE (SERTRALINE) (SERTRALINE) [Suspect]
     Indication: DEPRESSION
     Dosage: 1 DOSE IN 1 DAY.
     Route: 064
     Dates: start: 20130301

REACTIONS (5)
  - Unresponsive to stimuli [None]
  - Floppy infant [None]
  - Cyanosis neonatal [None]
  - Apnoea neonatal [None]
  - Maternal drugs affecting foetus [None]
